FAERS Safety Report 7953051-4 (Version None)
Quarter: 2011Q4

REPORT INFORMATION
  Report Type: 
  Country: None (occurrence: None)
  Receive Date: 20111201
  Receipt Date: 20111123
  Transmission Date: 20120403
  Serious: Yes (Hospitalization)
  Sender: FDA-Public Use
  Company Number: AR-ASTRAZENECA-2011SE71212

PATIENT
  Age: 68 Year
  Sex: Male

DRUGS (4)
  1. ATENOLOL [Concomitant]
     Indication: HYPERTENSION
  2. CASODEX [Suspect]
     Indication: PROSTATE CANCER
     Route: 048
     Dates: start: 20111001, end: 20111001
  3. ZOLADEX [Concomitant]
     Indication: PROSTATE CANCER
     Route: 058
  4. ASPIRIN [Concomitant]
     Indication: CARDIOVASCULAR EVENT PROPHYLAXIS

REACTIONS (2)
  - HEPATITIS TOXIC [None]
  - HEPATIC CIRRHOSIS [None]
